FAERS Safety Report 12780762 (Version 3)
Quarter: 2017Q2

REPORT INFORMATION
  Report Type: Spontaneous
  Country: US (occurrence: US)
  Receive Date: 20160926
  Receipt Date: 20170523
  Transmission Date: 20170830
  Serious: Yes (Other)
  Sender: FDA-Public Use
  Company Number: US-TEVA-696232ACC

PATIENT
  Age: 44 Year
  Sex: Female
  Weight: 64.47 kg

DRUGS (2)
  1. PARAGARD T 380A [Suspect]
     Active Substance: COPPER
     Indication: CONTRACEPTION
     Dates: start: 20160722, end: 20160914
  2. NEXIUM [Concomitant]
     Active Substance: ESOMEPRAZOLE MAGNESIUM

REACTIONS (6)
  - Dyspareunia [Recovered/Resolved with Sequelae]
  - Discomfort [Recovered/Resolved with Sequelae]
  - Pelvic pain [Recovered/Resolved with Sequelae]
  - Device dislocation [Recovered/Resolved with Sequelae]
  - Vaginal discharge [Recovered/Resolved with Sequelae]
  - Pain [Recovered/Resolved with Sequelae]

NARRATIVE: CASE EVENT DATE: 201608
